FAERS Safety Report 12774655 (Version 1)
Quarter: 2016Q3

REPORT INFORMATION
  Report Type: Spontaneous
  Country: US (occurrence: US)
  Receive Date: 20160923
  Receipt Date: 20160923
  Transmission Date: 20161109
  Serious: No
  Sender: FDA-Public Use
  Company Number: US-ENDO PHARMACEUTICALS INC.-2015-004516

PATIENT
  Sex: Male
  Weight: 80.36 kg

DRUGS (4)
  1. RISPERDAL [Concomitant]
     Active Substance: RISPERIDONE
     Indication: BIPOLAR DISORDER
  2. RISPERDAL [Concomitant]
     Active Substance: RISPERIDONE
     Indication: DISTURBANCE IN ATTENTION
  3. ALPRAZOLAM IR TABLETS [Suspect]
     Active Substance: ALPRAZOLAM
     Route: 048
  4. ALPRAZOLAM IR TABLETS [Suspect]
     Active Substance: ALPRAZOLAM
     Indication: BIPOLAR DISORDER
     Route: 048
     Dates: start: 201509

REACTIONS (4)
  - Intentional product misuse [Unknown]
  - Drug dose omission [Recovered/Resolved]
  - Anger [Unknown]
  - Drug ineffective [Unknown]

NARRATIVE: CASE EVENT DATE: 2015
